FAERS Safety Report 16072430 (Version 1)
Quarter: 2019Q2

REPORT INFORMATION
  Report Type: Spontaneous
  Country: US (occurrence: US)
  Receive Date: 20190314
  Receipt Date: 20190314
  Transmission Date: 20190711
  Serious: No
  Sender: FDA-Public Use
  Company Number: None

PATIENT
  Age: 57 Year
  Sex: Female
  Weight: 63.45 kg

DRUGS (2)
  1. MEPERIDINE [Suspect]
     Active Substance: MEPERIDINE
     Indication: COLONOSCOPY
     Dosage: ?          OTHER FREQUENCY:ONCE;?
     Route: 042
     Dates: start: 20190307, end: 20190307
  2. MIDAZOLAM [Concomitant]
     Active Substance: MIDAZOLAM HYDROCHLORIDE
     Dates: start: 20190307, end: 20190307

REACTIONS (1)
  - Nausea [None]

NARRATIVE: CASE EVENT DATE: 20190307
